FAERS Safety Report 8930057 (Version 1)
Quarter: 2012Q4

REPORT INFORMATION
  Report Type: 
  Country: US (occurrence: US)
  Receive Date: 20121128
  Receipt Date: 20121128
  Transmission Date: 20130627
  Serious: No
  Sender: FDA-Public Use
  Company Number: US-009507513-1211USA009852

PATIENT
  Sex: Male

DRUGS (1)
  1. JANUVIA [Suspect]
     Dosage: 50 mg, UNK
     Route: 048

REACTIONS (3)
  - Dysphagia [Unknown]
  - Wrong technique in drug usage process [Unknown]
  - No adverse event [Unknown]
